FAERS Safety Report 8969437 (Version 1)
Quarter: 2012Q4

REPORT INFORMATION
  Report Type: 
  Country: DE (occurrence: DE)
  Receive Date: 20121217
  Receipt Date: 20121217
  Transmission Date: 20130627
  Serious: Yes (Other)
  Sender: FDA-Public Use
  Company Number: GXKR2012DE003823

PATIENT
  Age: 71 Year
  Sex: Female

DRUGS (1)
  1. ALLOPURINOL [Suspect]
     Indication: HYPERURICAEMIA
     Dosage: 100 mg, QD
     Route: 048
     Dates: start: 20120507, end: 20120529

REACTIONS (11)
  - Nail disorder [Recovered/Resolved with Sequelae]
  - Restlessness [Recovered/Resolved with Sequelae]
  - Hypoaesthesia teeth [Recovered/Resolved with Sequelae]
  - Asthenia [Recovered/Resolved with Sequelae]
  - Dermatitis exfoliative [Recovered/Resolved with Sequelae]
  - Hypogeusia [Recovered/Resolved with Sequelae]
  - Oedema peripheral [Recovered/Resolved with Sequelae]
  - Pruritus [Recovered/Resolved with Sequelae]
  - Rash maculo-papular [Recovered/Resolved with Sequelae]
  - Skin erosion [Recovered/Resolved with Sequelae]
  - Skin exfoliation [Recovered/Resolved with Sequelae]
